FAERS Safety Report 8455141-9 (Version None)
Quarter: 2012Q2

REPORT INFORMATION
  Report Type: 
  Country: None (occurrence: None)
  Receive Date: 20120614
  Receipt Date: 20120603
  Transmission Date: 20120825
  Serious: Yes (Other)
  Sender: FDA-Public Use
  Company Number: JPI-P--021134

PATIENT
  Age: 35 Year
  Sex: Female
  Weight: 49.8957 kg

DRUGS (6)
  1. METHAMPHETAMINE HYDROCHLORIDE [Suspect]
  2. XYREM [Suspect]
     Indication: CATAPLEXY
     Dosage: 6 GM (3 GM,2 IN 1 D),ORAL ; ORAL ; 9 GM (4.5 GM,2 IN 1 D),ORAL
     Route: 048
     Dates: end: 20120408
  3. XYREM [Suspect]
     Indication: CATAPLEXY
     Dosage: 6 GM (3 GM,2 IN 1 D),ORAL ; ORAL ; 9 GM (4.5 GM,2 IN 1 D),ORAL
     Route: 048
     Dates: start: 20111121
  4. XYREM [Suspect]
     Indication: CATAPLEXY
     Dosage: 6 GM (3 GM,2 IN 1 D),ORAL ; ORAL ; 9 GM (4.5 GM,2 IN 1 D),ORAL
     Route: 048
     Dates: start: 20120409
  5. MULTI-VITAMIN [Concomitant]
  6. OMEGA 3/6/9 [Concomitant]

REACTIONS (8)
  - PARANOIA [None]
  - URINARY TRACT INFECTION [None]
  - LEGAL PROBLEM [None]
  - SUBSTANCE USE [None]
  - INITIAL INSOMNIA [None]
  - MEMORY IMPAIRMENT [None]
  - LOSS OF EMPLOYMENT [None]
  - WEIGHT DECREASED [None]
